FAERS Safety Report 7622516-7 (Version None)
Quarter: 2011Q3

REPORT INFORMATION
  Report Type: 
  Country: None (occurrence: None)
  Receive Date: 20110719
  Receipt Date: 20110719
  Transmission Date: 20111222
  Serious: No
  Sender: FDA-Public Use
  Company Number: None

PATIENT
  Age: 32 Year
  Sex: Female
  Weight: 70.3075 kg

DRUGS (1)
  1. AVELOX [Suspect]
     Dosage: 400 MG DAILY PO
     Route: 048

REACTIONS (5)
  - SYNCOPE [None]
  - ARTHRALGIA [None]
  - NAUSEA [None]
  - TENDON PAIN [None]
  - DIZZINESS [None]
